FAERS Safety Report 16708977 (Version 3)
Quarter: 2019Q3

REPORT INFORMATION
  Report Type: Spontaneous
  Country: US (occurrence: US)
  Receive Date: 20190816
  Receipt Date: 20190919
  Transmission Date: 20191004
  Serious: Yes (Other)
  Sender: FDA-Public Use
  Company Number: US-AUROBINDO-AUR-APL-2019-046325

PATIENT
  Age: 30 Year
  Sex: Female

DRUGS (26)
  1. CLOZAPINE. [Interacting]
     Active Substance: CLOZAPINE
     Dosage: 300 MILLIGRAM, ONCE A DAY
     Route: 065
  2. DIPHENHYDRAMINE. [Concomitant]
     Active Substance: DIPHENHYDRAMINE
     Indication: PRODUCT USED FOR UNKNOWN INDICATION
     Dosage: 50 MILLIGRAM, ONCE A DAY
     Route: 065
  3. AMLODIPINE [Concomitant]
     Active Substance: AMLODIPINE BESYLATE
     Indication: HYPERTENSION
     Dosage: 5 MILLIGRAM, ONCE A DAY
     Route: 065
  4. GEMFIBROZIL. [Interacting]
     Active Substance: GEMFIBROZIL
     Dosage: 600 MILLIGRAM, DAILY
     Route: 065
  5. HALOPERIDOL. [Concomitant]
     Active Substance: HALOPERIDOL
     Indication: SCHIZOPHRENIA
     Dosage: 20 MILLIGRAM, DAILY
     Route: 065
  6. DOCUSATE [Concomitant]
     Active Substance: DOCUSATE
     Dosage: 500 MILLIGRAM, ONCE A DAY
     Route: 065
  7. GEMFIBROZIL. [Interacting]
     Active Substance: GEMFIBROZIL
     Dosage: 600 MILLIGRAM, TOTAL (PATIENT HAD ALREADY TAKEN THE MORNING DOSE)
     Route: 065
  8. DOCUSATE [Concomitant]
     Active Substance: DOCUSATE
     Indication: PRODUCT USED FOR UNKNOWN INDICATION
     Dosage: 200 MILLIGRAM, ONCE A DAY
     Route: 065
  9. CLOZAPINE. [Interacting]
     Active Substance: CLOZAPINE
     Dosage: SHE HAS TAKEN CLO DURING HER LAST 7 ADMISSIONS
     Route: 065
  10. METOPROLOL. [Concomitant]
     Active Substance: METOPROLOL
     Indication: HYPERTENSION
     Dosage: 100 MILLIGRAM, ONCE A DAY
     Route: 065
  11. LISINOPRIL. [Concomitant]
     Active Substance: LISINOPRIL
     Indication: HYPERTENSION
     Dosage: 5 MILLIGRAM, ONCE A DAY
     Route: 065
  12. METFORMIN [Concomitant]
     Active Substance: METFORMIN HYDROCHLORIDE
     Indication: TYPE 2 DIABETES MELLITUS
     Dosage: 1000 MILLIGRAM, ONCE A DAY
     Route: 065
  13. ATORVASTATIN [Concomitant]
     Active Substance: ATORVASTATIN
     Indication: HYPERCHOLESTEROLAEMIA
     Dosage: 20 MILLIGRAM, ONCE A DAY
     Route: 065
  14. CLOZAPINE. [Interacting]
     Active Substance: CLOZAPINE
     Dosage: 200 MILLIGRAM, ONCE A DAY
     Route: 065
  15. SULFAMETHOXAZOLE;TRIMETHOPRIM [Concomitant]
     Active Substance: SULFAMETHOXAZOLE\TRIMETHOPRIM
     Indication: PRODUCT USED FOR UNKNOWN INDICATION
     Dosage: 1600/320 MG/DAY, ONCE A DAY
     Route: 065
  16. METOPROLOL. [Concomitant]
     Active Substance: METOPROLOL
     Dosage: 50 MILLIGRAM, ONCE A DAY
     Route: 065
  17. OMEPRAZOLE. [Concomitant]
     Active Substance: OMEPRAZOLE
     Indication: GASTROOESOPHAGEAL REFLUX DISEASE
     Dosage: 20 MILLIGRAM, ONCE A DAY
     Route: 065
  18. CLOZAPINE. [Suspect]
     Active Substance: CLOZAPINE
     Indication: SCHIZOPHRENIA
     Dosage: 600 MILLIGRAM, ONCE A DAY
     Route: 065
  19. DOCUSATE [Concomitant]
     Active Substance: DOCUSATE
     Dosage: 100 MILLIGRAM, ONCE A DAY
     Route: 065
  20. ESCITALOPRAM [Concomitant]
     Active Substance: ESCITALOPRAM OXALATE
     Indication: SCHIZOPHRENIA
     Dosage: 10 MILLIGRAM, ONCE A DAY
     Route: 065
  21. GEMFIBROZIL. [Interacting]
     Active Substance: GEMFIBROZIL
     Indication: HYPERCHOLESTEROLAEMIA
     Dosage: UNK
     Route: 065
  22. BENZTROPEINE [Concomitant]
     Active Substance: TROPINE BENZYLATE
     Indication: PRODUCT USED FOR UNKNOWN INDICATION
     Dosage: 1 MILLIGRAM, ONCE A DAY
     Route: 065
  23. GEMFIBROZIL. [Interacting]
     Active Substance: GEMFIBROZIL
     Dosage: 1200 MILLIGRAM, DAILY
     Route: 065
  24. SIMVASTATIN. [Concomitant]
     Active Substance: SIMVASTATIN
     Indication: HYPERCHOLESTEROLAEMIA
     Dosage: 20 MILLIGRAM, ONCE A DAY
     Route: 065
  25. NICOTINE. [Concomitant]
     Active Substance: NICOTINE
     Indication: PRODUCT USED FOR UNKNOWN INDICATION
     Dosage: 21 MILLIGRAM, ONCE A DAY
     Route: 062
  26. LITHIUM. [Concomitant]
     Active Substance: LITHIUM
     Indication: SCHIZOPHRENIA
     Dosage: 900 MILLIGRAM, ONCE A DAY
     Route: 065

REACTIONS (2)
  - Drug level increased [Recovered/Resolved]
  - Drug interaction [Recovered/Resolved]
